FAERS Safety Report 5400326-9 (Version None)
Quarter: 2007Q3

REPORT INFORMATION
  Report Type: 
  Country: None (occurrence: None)
  Receive Date: 20070730
  Receipt Date: 20070725
  Transmission Date: 20080115
  Serious: Yes (Hospitalization)
  Sender: FDA-Public Use
  Company Number: A0640601A

PATIENT
  Age: 34 Year
  Sex: Female
  Weight: 101.4 kg

DRUGS (4)
  1. PAXIL [Suspect]
     Dosage: 20MG PER DAY
     Route: 048
     Dates: start: 19910101
  2. WELLBUTRIN SR [Suspect]
     Dosage: 150MG PER DAY
     Route: 048
     Dates: start: 19910101
  3. BUPROPION HYDROCHLORIDE [Suspect]
     Route: 048
  4. KLONOPIN [Concomitant]
     Dates: start: 19910101

REACTIONS (3)
  - DEEP VEIN THROMBOSIS [None]
  - DELIVERY [None]
  - DEPRESSION [None]
